FAERS Safety Report 5916236-4 (Version None)
Quarter: 2008Q4

REPORT INFORMATION
  Report Type: 
  Country: None (occurrence: None)
  Receive Date: 20081013
  Receipt Date: 20080929
  Transmission Date: 20090506
  Serious: Yes (Other)
  Sender: FDA-Public Use
  Company Number: PHEH2008US08765

PATIENT
  Sex: Female

DRUGS (2)
  1. RECLAST [Suspect]
  2. BONIVA [Suspect]

REACTIONS (5)
  - COLECTOMY [None]
  - DIZZINESS [None]
  - INCORRECT ROUTE OF DRUG ADMINISTRATION [None]
  - PAIN IN EXTREMITY [None]
  - VERTIGO [None]
